FAERS Safety Report 6744121-7 (Version None)
Quarter: 2010Q2

REPORT INFORMATION
  Report Type: 
  Country: None (occurrence: None)
  Receive Date: 20100527
  Receipt Date: 20100517
  Transmission Date: 20101027
  Serious: Yes (Hospitalization)
  Sender: FDA-Public Use
  Company Number: B0650934A

PATIENT
  Age: 71 Year
  Sex: Male
  Weight: 70 kg

DRUGS (5)
  1. ARIXTRA [Suspect]
     Dosage: 7.5MG PER DAY
     Route: 058
     Dates: start: 20100415, end: 20100506
  2. PREVISCAN [Suspect]
     Indication: PHLEBITIS
     Dosage: 20MG PER DAY
     Route: 048
     Dates: start: 20100415, end: 20100417
  3. AMLOR [Concomitant]
     Indication: HYPERTENSION
     Route: 065
  4. TARKA [Concomitant]
     Dosage: 1UNIT PER DAY
     Route: 048
  5. ALDACTONE [Concomitant]
     Dosage: 37.5MG PER DAY
     Route: 048

REACTIONS (2)
  - HAEMATURIA [None]
  - INCORRECT DRUG ADMINISTRATION DURATION [None]
